FAERS Safety Report 8847780 (Version 4)
Quarter: 2013Q2

REPORT INFORMATION
  Report Type: Report from Study
  Country: JP (occurrence: JP)
  Receive Date: 20121018
  Receipt Date: 20130430
  Transmission Date: 20140414
  Serious: Yes (Death, Hospitalization, Other)
  Sender: FDA-Public Use
  Company Number: JP-ABBOTT-12P-087-0995435-00

PATIENT
  Age: 66 Year
  Sex: Female
  Weight: 31 kg

DRUGS (10)
  1. HUMIRA [Suspect]
     Indication: RHEUMATOID ARTHRITIS
     Route: 058
     Dates: start: 20120606
  2. ARAVA [Suspect]
     Indication: RHEUMATOID ARTHRITIS
     Dates: end: 20120808
  3. PREDNISOLONE [Concomitant]
     Indication: RHEUMATOID ARTHRITIS
     Route: 048
     Dates: end: 20120808
  4. SULFAMETHOXAZOLE AND TRIMETHOPRIM [Concomitant]
     Indication: PROPHYLAXIS
     Route: 048
     Dates: end: 20120808
  5. SULFAMETHOXAZOLE AND TRIMETHOPRIM [Concomitant]
     Indication: ADVERSE EVENT
  6. AMLODIPINE BESILATE W/ATORVASTATIN CALCIUM [Concomitant]
     Indication: PRODUCT USED FOR UNKNOWN INDICATION
     Route: 048
     Dates: end: 20120808
  7. OLMESARTAN MEDOXOMIL [Concomitant]
     Indication: PRODUCT USED FOR UNKNOWN INDICATION
     Route: 048
     Dates: end: 20120808
  8. ALENDRONATE SODIUM [Concomitant]
     Indication: PRODUCT USED FOR UNKNOWN INDICATION
     Dosage: 35 MG/WEEK
     Route: 048
     Dates: end: 20120808
  9. LANSOPRAZOLE [Concomitant]
     Indication: GASTRITIS PROPHYLAXIS
     Route: 048
     Dates: end: 20120808
  10. TULOBUTEROL [Concomitant]
     Indication: CHRONIC OBSTRUCTIVE PULMONARY DISEASE
     Route: 062
     Dates: end: 20120808

REACTIONS (7)
  - Interstitial lung disease [Fatal]
  - Disseminated intravascular coagulation [Fatal]
  - Abdominal pain [Unknown]
  - Respiratory failure [Unknown]
  - Pneumonia [Unknown]
  - Decreased appetite [Unknown]
  - Hyperthermia [Unknown]
